FAERS Safety Report 14572867 (Version 1)
Quarter: 2018Q1

REPORT INFORMATION
  Report Type: Spontaneous
  Country: JP (occurrence: JP)
  Receive Date: 20180226
  Receipt Date: 20180226
  Transmission Date: 20180509
  Serious: Yes (Other)
  Sender: FDA-Public Use
  Company Number: JP-TELIGENT, INC-IGIL20180094

PATIENT
  Age: 58 Year
  Sex: Male

DRUGS (3)
  1. LIDOCAINE. [Concomitant]
     Active Substance: LIDOCAINE
     Indication: ANAESTHESIA
     Dosage: 4%
     Route: 061
  2. TRIAMCINOLONE ACETONIDE. [Suspect]
     Active Substance: TRIAMCINOLONE ACETONIDE
     Indication: MACULAR OEDEMA
     Dosage: 20 MG
     Route: 031
  3. OFLOXACIN. [Concomitant]
     Active Substance: OFLOXACIN
     Indication: PRODUCT USED FOR UNKNOWN INDICATION
     Dosage: UNKNOWN
     Route: 061

REACTIONS (18)
  - Periphlebitis [Unknown]
  - Cataract [Unknown]
  - Scedosporium infection [Recovered/Resolved]
  - Purulent discharge [Unknown]
  - Eye movement disorder [Unknown]
  - Exophthalmos [Unknown]
  - Endophthalmitis [Recovered/Resolved]
  - Eyelid ptosis [Unknown]
  - Visual field defect [Unknown]
  - Macular detachment [Recovered/Resolved]
  - Eye abscess [Recovered/Resolved]
  - Vitritis [Unknown]
  - Fibrosis [Unknown]
  - Cyst [Unknown]
  - Eye pain [Unknown]
  - Diplopia [Unknown]
  - Retinal haemorrhage [Unknown]
  - Mass [Recovering/Resolving]
